FAERS Safety Report 19969148 (Version 1)
Quarter: 2021Q4

REPORT INFORMATION
  Report Type: Spontaneous
  Country: US (occurrence: US)
  Receive Date: 20211019
  Receipt Date: 20211019
  Transmission Date: 20220303
  Serious: Yes (Hospitalization)
  Sender: FDA-Public Use
  Company Number: None

PATIENT
  Age: 34 Year
  Sex: Female
  Weight: 101.25 kg

DRUGS (10)
  1. RUFINAMIDE [Suspect]
     Active Substance: RUFINAMIDE
     Indication: Epilepsy
     Dosage: ?          QUANTITY:4 TABLET(S);
     Route: 048
  2. CHLORPHENIRAMINE MALEATE [Concomitant]
     Active Substance: CHLORPHENIRAMINE MALEATE
  3. LORAZEPAM [Concomitant]
     Active Substance: LORAZEPAM
  4. MIDAZOLAM (K-NS) SPRAY [Concomitant]
  5. DIETARY SUPPLEMENT\HERBALS [Concomitant]
     Active Substance: DIETARY SUPPLEMENT\HERBALS
  6. COENZYME Q10 [Concomitant]
     Active Substance: DIETARY SUPPLEMENT\UBIDECARENONE
  7. OMEGA-3 FATTY ACIDS [Concomitant]
     Active Substance: OMEGA-3 FATTY ACIDS
  8. VITAMIN D [Concomitant]
     Active Substance: VITAMIN D NOS
  9. VITAMIN B12 [Concomitant]
     Active Substance: CYANOCOBALAMIN
  10. GLUCOSAMINE MSAN JOINT SUPPLEMENT [Concomitant]

REACTIONS (11)
  - Malaise [None]
  - Neck pain [None]
  - Pyrexia [None]
  - Lymphadenopathy [None]
  - Rash erythematous [None]
  - Rash [None]
  - Rash [None]
  - Dyspnoea exertional [None]
  - Rash [None]
  - Skin warm [None]
  - Product substitution issue [None]

NARRATIVE: CASE EVENT DATE: 20210928
